FAERS Safety Report 23921506 (Version 2)
Quarter: 2024Q2

REPORT INFORMATION
  Report Type: Spontaneous
  Country: GB (occurrence: GB)
  Receive Date: 20240530
  Receipt Date: 20240604
  Transmission Date: 20240715
  Serious: Yes (Other)
  Sender: FDA-Public Use
  Company Number: GB-SANDOZ-SDZ2024GB021339

PATIENT
  Sex: Female

DRUGS (2)
  1. MOMETASONE FUROATE [Suspect]
     Active Substance: MOMETASONE FUROATE
     Indication: Product used for unknown indication
     Dosage: UNK
     Route: 045
  2. MOMETASONE FUROATE [Suspect]
     Active Substance: MOMETASONE FUROATE
     Dosage: 50 UG, SUSPENSION BOTTLE
     Route: 045

REACTIONS (6)
  - Wheezing [Unknown]
  - Nasal pruritus [Unknown]
  - Sneezing [Unknown]
  - Drug ineffective [Unknown]
  - Product odour abnormal [Unknown]
  - Physical product label issue [Unknown]

NARRATIVE: CASE EVENT DATE: 20240213
